FAERS Safety Report 21992904 (Version 1)
Quarter: 2023Q1

REPORT INFORMATION
  Report Type: Spontaneous
  Country: US (occurrence: US)
  Receive Date: 20230215
  Receipt Date: 20230215
  Transmission Date: 20230417
  Serious: No
  Sender: FDA-Public Use
  Company Number: US-BIOGEN-2020BI00860958

PATIENT
  Sex: Female

DRUGS (5)
  1. TECFIDERA [Suspect]
     Active Substance: DIMETHYL FUMARATE
     Indication: Multiple sclerosis
     Route: 050
     Dates: start: 2020
  2. TECFIDERA [Suspect]
     Active Substance: DIMETHYL FUMARATE
     Route: 050
  3. TECFIDERA [Suspect]
     Active Substance: DIMETHYL FUMARATE
     Route: 050
  4. ASPIRIN [Concomitant]
     Active Substance: ASPIRIN
     Route: 050
  5. DRAMAMINE [Concomitant]
     Active Substance: DIMENHYDRINATE
     Route: 050

REACTIONS (2)
  - Abdominal discomfort [Recovered/Resolved]
  - Flushing [Recovered/Resolved]
